FAERS Safety Report 11735937 (Version 1)
Quarter: 2015Q4

REPORT INFORMATION
  Report Type: Spontaneous
  Country: US (occurrence: US)
  Receive Date: 20151110
  Receipt Date: 20151110
  Transmission Date: 20160304
  Serious: No
  Sender: FDA-Public Use
  Company Number: US-ELI_LILLY_AND_COMPANY-US201206003671

PATIENT
  Age: 74 Year
  Sex: Female

DRUGS (4)
  1. FORTEO [Suspect]
     Active Substance: TERIPARATIDE
     Dosage: 20 UG, QD
  2. FORTEO [Suspect]
     Active Substance: TERIPARATIDE
     Indication: OSTEOPOROSIS
     Dosage: 20 UG, QD
  3. CALCIUM [Concomitant]
     Active Substance: CALCIUM
  4. VITAMIN D [Concomitant]
     Active Substance: CHOLECALCIFEROL

REACTIONS (10)
  - Fall [Unknown]
  - Fatigue [Unknown]
  - Upper limb fracture [Unknown]
  - Fall [Unknown]
  - Fall [Unknown]
  - Thrombosis [Recovered/Resolved]
  - Oral disorder [Unknown]
  - Joint injury [Unknown]
  - Biopsy thyroid gland [Unknown]
  - Pain [Unknown]

NARRATIVE: CASE EVENT DATE: 201201
